FAERS Safety Report 6086135-9 (Version None)
Quarter: 2009Q1

REPORT INFORMATION
  Report Type: 
  Country: None (occurrence: None)
  Receive Date: 20090217
  Receipt Date: 20080507
  Transmission Date: 20090719
  Serious: Yes (Death, Other)
  Sender: FDA-Public Use
  Company Number: MC200800230

PATIENT
  Sex: Female

DRUGS (1)
  1. ANGIOMAX [Suspect]
     Dosage: 0.75 MG/KG, BOLUS, INTRAVENOUS; 1.75 MG/KG, HR, INTRAVENOUS
     Route: 040

REACTIONS (2)
  - HAEMATOMA [None]
  - HAEMORRHAGE [None]
